FAERS Safety Report 9603802 (Version 4)
Quarter: 2013Q4

REPORT INFORMATION
  Report Type: Spontaneous
  Country: JP (occurrence: JP)
  Receive Date: 20131008
  Receipt Date: 20131030
  Transmission Date: 20140711
  Serious: Yes (Hospitalization, Other)
  Sender: FDA-Public Use
  Company Number: JP-009507513-1310JPN002564

PATIENT
  Age: 66 Year
  Sex: Female

DRUGS (5)
  1. JANUVIA TABLETS 25MG [Suspect]
     Dosage: UNK
     Route: 048
  2. INSULIN [Concomitant]
     Indication: TYPE 2 DIABETES MELLITUS
     Dosage: UNK
  3. METFORMIN HYDROCHLORIDE [Concomitant]
     Indication: TYPE 2 DIABETES MELLITUS
     Dosage: UNK
  4. METHIMAZOLE [Concomitant]
     Indication: TYPE 2 DIABETES MELLITUS
     Dosage: 10 MG, UNK
  5. METHIMAZOLE [Concomitant]
     Dosage: 20 MG PER DAY

REACTIONS (4)
  - Diabetic ketoacidosis [Unknown]
  - Thyrotoxic crisis [Unknown]
  - Weight increased [Unknown]
  - Oedema peripheral [Unknown]
